FAERS Safety Report 10153812 (Version 1)
Quarter: 2014Q2

REPORT INFORMATION
  Report Type: Report from Study
  Country: GB (occurrence: GB)
  Receive Date: 20140506
  Receipt Date: 20140506
  Transmission Date: 20141212
  Serious: Yes (Death)
  Sender: FDA-Public Use
  Company Number: GB-AMGEN INC.-GBRCT2014032443

PATIENT
  Age: 43 Year
  Sex: Male

DRUGS (4)
  1. ETANERCEPT [Suspect]
     Indication: PRODUCT USED FOR UNKNOWN INDICATION
     Dosage: 25 MG, 2 TIMES/WK
     Route: 065
     Dates: start: 20100608
  2. AMLODIPINE [Concomitant]
     Dosage: UNK
     Dates: start: 20090701
  3. MULTIVITAMINS [Concomitant]
     Dosage: UNK
     Dates: start: 20120120
  4. VITAMIN B [Concomitant]
     Dosage: UNK
     Dates: start: 20120120

REACTIONS (3)
  - Multi-organ failure [Fatal]
  - Hepatitis alcoholic [Fatal]
  - Hepatic cirrhosis [Fatal]
